FAERS Safety Report 14820680 (Version 1)
Quarter: 2018Q2

REPORT INFORMATION
  Report Type: Report from Study
  Country: CO (occurrence: CO)
  Receive Date: 20180427
  Receipt Date: 20180427
  Transmission Date: 20180711
  Serious: Yes (Hospitalization)
  Sender: FDA-Public Use
  Company Number: CO-ROCHE-2111760

PATIENT
  Age: 8 Year
  Sex: Female
  Weight: 23 kg

DRUGS (1)
  1. XOLAIR [Suspect]
     Active Substance: OMALIZUMAB
     Indication: CHRONIC SPONTANEOUS URTICARIA
     Route: 058
     Dates: start: 20180224, end: 20180329

REACTIONS (12)
  - Chest discomfort [Unknown]
  - Urticaria [Unknown]
  - Chills [Unknown]
  - Tachycardia [Unknown]
  - Headache [Unknown]
  - Dermatitis exfoliative generalised [Unknown]
  - Erythema [Unknown]
  - Product use issue [Unknown]
  - Pyrexia [Unknown]
  - Thirst [Unknown]
  - Oropharyngeal pain [Unknown]
  - Asthenia [Unknown]

NARRATIVE: CASE EVENT DATE: 20180324
